FAERS Safety Report 6912359-1 (Version None)
Quarter: 2010Q3

REPORT INFORMATION
  Report Type: 
  Country: None (occurrence: None)
  Receive Date: 20100806
  Receipt Date: 20080430
  Transmission Date: 20110219
  Serious: Yes (Other)
  Sender: FDA-Public Use
  Company Number: US-PFIZER INC-2008024516

PATIENT
  Sex: Male
  Weight: 74.09 kg

DRUGS (5)
  1. DETROL LA [Suspect]
     Indication: INCONTINENCE
     Dates: start: 20010101, end: 20010101
  2. SYNTHROID [Concomitant]
  3. ZANTAC [Concomitant]
  4. ZOCOR [Concomitant]
  5. CASODEX [Concomitant]

REACTIONS (2)
  - DRUG INEFFECTIVE [None]
  - URINARY RETENTION [None]
